FAERS Safety Report 12665165 (Version 1)
Quarter: 2016Q3

REPORT INFORMATION
  Report Type: Spontaneous
  Country: US (occurrence: US)
  Receive Date: 20160818
  Receipt Date: 20160818
  Transmission Date: 20161109
  Serious: No
  Sender: FDA-Public Use
  Company Number: US-FRI-1000080243

PATIENT
  Age: 24 Year
  Sex: Female
  Weight: 45.4 kg

DRUGS (5)
  1. KLONOPIN [Suspect]
     Active Substance: CLONAZEPAM
  2. CELEXA [Suspect]
     Active Substance: CITALOPRAM HYDROBROMIDE
  3. MIDRIN [Suspect]
     Active Substance: ACETAMINOPHEN\DICHLORALPHENAZONE\ISOMETHEPTENE
  4. KEPPRA [Suspect]
     Active Substance: LEVETIRACETAM
     Dosage: 4 DF
  5. LAMICTAL [Suspect]
     Active Substance: LAMOTRIGINE
     Dosage: 6 DF

REACTIONS (3)
  - Anxiety [Not Recovered/Not Resolved]
  - Feelings of worthlessness [Not Recovered/Not Resolved]
  - Fear [Not Recovered/Not Resolved]
